FAERS Safety Report 21128317 (Version 8)
Quarter: 2022Q4

REPORT INFORMATION
  Report Type: Spontaneous
  Country: US (occurrence: US)
  Receive Date: 20220725
  Receipt Date: 20221109
  Transmission Date: 20230113
  Serious: Yes (Hospitalization, Other)
  Sender: FDA-Public Use
  Company Number: US-BAYER-2022A098196

PATIENT
  Age: 42 Year
  Sex: Male
  Weight: 95.238 kg

DRUGS (12)
  1. KOGENATE FS [Suspect]
     Active Substance: ANTIHEMOPHILIC FACTOR, HUMAN RECOMBINANT
     Indication: Factor VIII deficiency
     Dosage: 3400 IU, PRN
     Route: 042
     Dates: start: 20201212
  2. KOGENATE FS [Suspect]
     Active Substance: ANTIHEMOPHILIC FACTOR, HUMAN RECOMBINANT
     Indication: Factor VIII deficiency
     Dosage: 1059 IU, PRN
     Route: 042
     Dates: start: 20201212
  3. KOGENATE FS [Suspect]
     Active Substance: ANTIHEMOPHILIC FACTOR, HUMAN RECOMBINANT
     Indication: Factor VIII deficiency
     Dosage: 4500 IU, PRN
     Route: 042
     Dates: start: 20131217
  4. KOGENATE FS [Suspect]
     Active Substance: ANTIHEMOPHILIC FACTOR, HUMAN RECOMBINANT
     Indication: Factor VIII deficiency
     Dosage: 4500 IU, PRN
     Route: 042
     Dates: start: 20210331
  5. KOGENATE FS [Suspect]
     Active Substance: ANTIHEMOPHILIC FACTOR, HUMAN RECOMBINANT
     Indication: Factor VIII deficiency
     Dosage: 1 DF FOR ACTIVE BLEED IN RIGHT ANKLE
     Dates: start: 20220710, end: 20220710
  6. KOGENATE FS [Suspect]
     Active Substance: ANTIHEMOPHILIC FACTOR, HUMAN RECOMBINANT
     Indication: Factor VIII deficiency
     Dosage: 1 DF FOR ACTIVE BLEED IN RIGHT ANKLE
     Dates: start: 20220711, end: 20220711
  7. KOGENATE FS [Suspect]
     Active Substance: ANTIHEMOPHILIC FACTOR, HUMAN RECOMBINANT
     Indication: Factor VIII deficiency
     Dosage: UNK, FOR BLEED ON RIGHT ANKLE
     Dates: start: 202207
  8. KOGENATE FS [Suspect]
     Active Substance: ANTIHEMOPHILIC FACTOR, HUMAN RECOMBINANT
     Indication: Factor VIII deficiency
     Dosage: 1 DF, FOR THE ACTIVE BLEED IN RIGHT ANKLE TREATMENT
  9. KOGENATE FS [Suspect]
     Active Substance: ANTIHEMOPHILIC FACTOR, HUMAN RECOMBINANT
     Indication: Factor VIII deficiency
     Dosage: 2 DF, FOR THE RIGHT ANKLE BLEED TREATMENT
     Route: 042
  10. KOGENATE FS [Suspect]
     Active Substance: ANTIHEMOPHILIC FACTOR, HUMAN RECOMBINANT
     Indication: Factor VIII deficiency
     Dosage: UNK, FOR ACTIVE BLEED IN LEFT ANKLE
     Dates: start: 20221002
  11. KOGENATE FS [Suspect]
     Active Substance: ANTIHEMOPHILIC FACTOR, HUMAN RECOMBINANT
     Indication: Factor VIII deficiency
     Dosage: 3 DF FOR LEFT ANKLE BLEED
  12. HEMLIBRA [Concomitant]
     Active Substance: EMICIZUMAB-KXWH

REACTIONS (6)
  - Haemarthrosis [Not Recovered/Not Resolved]
  - Haemarthrosis [Not Recovered/Not Resolved]
  - Haemarthrosis [Recovered/Resolved]
  - Haemarthrosis [Recovering/Resolving]
  - Haemarthrosis [Not Recovered/Not Resolved]
  - Weight decreased [None]

NARRATIVE: CASE EVENT DATE: 20220701
